FAERS Safety Report 8993607 (Version 1)
Quarter: 2013Q1

REPORT INFORMATION
  Report Type: Other
  Country: GB (occurrence: GB)
  Receive Date: 20130102
  Receipt Date: 20130102
  Transmission Date: 20140127
  Serious: Yes (Disabling)
  Sender: FDA-Public Use
  Company Number: GB-WATSON-2012-22939

PATIENT
  Age: 74 Year
  Sex: Male

DRUGS (5)
  1. PREDNISOLONE (UNKNOWN) [Suspect]
     Indication: MYALGIA
     Dosage: 40 MILLIGRAM DAILY; STARTED WITH 40MG/DAY AND THEN REDUCED
     Route: 065
     Dates: start: 201106, end: 201106
  2. PREDNISOLONE (UNKNOWN) [Suspect]
     Indication: TEMPORAL ARTERITIS
     Dosage: 30 MILLIGRAM DAILY; LATER IN JUN/2011 REDUCED TO 30MG/DAY TILL MID-JULY
     Route: 065
     Dates: start: 201106, end: 201107
  3. PREDNISOLONE (UNKNOWN) [Suspect]
     Dosage: 25 MILLIGRAM DAILY; REDUCED DOSE TO 25MG/DAY IN MID JULY TO AUG 2011
     Route: 065
     Dates: start: 201107, end: 201108
  4. PREDNISOLONE (UNKNOWN) [Suspect]
     Dosage: 15 MILLIGRAM DAILY; FROM AUG/2011 TO JUN/2012 REMAINED APPROX 15MG
     Route: 065
     Dates: start: 201108, end: 201206
  5. PREDNISOLONE (UNKNOWN) [Suspect]
     Dosage: 3 MILLIGRAM DAILY; FROM JUL/2012 THE DOSE WAS STEADILY REDUCED AND NOW IS ON 3MG/DAY
     Route: 065
     Dates: start: 201207

REACTIONS (4)
  - Tendon rupture [Unknown]
  - Pain [Unknown]
  - Muscular weakness [Unknown]
  - Fall [Unknown]
